FAERS Safety Report 4804300-2 (Version None)
Quarter: 2005Q4

REPORT INFORMATION
  Report Type: 
  Country: None (occurrence: None)
  Receive Date: 20051017
  Receipt Date: 20051003
  Transmission Date: 20060501
  Serious: Yes (Death)
  Sender: FDA-Public Use
  Company Number: B0395847A

PATIENT
  Age: 24 Year

DRUGS (4)
  1. PAXIL [Suspect]
  2. QUETIAPINE FUMARATE [Suspect]
     Dosage: ORAL
     Route: 048
  3. IBUPROFEN [Suspect]
  4. . [Concomitant]

REACTIONS (1)
  - COMPLETED SUICIDE [None]
